FAERS Safety Report 16320694 (Version 1)
Quarter: 2019Q2

REPORT INFORMATION
  Report Type: Spontaneous
  Country: IT (occurrence: IT)
  Receive Date: 20190516
  Receipt Date: 20190516
  Transmission Date: 20190711
  Serious: Yes (Hospitalization)
  Sender: FDA-Public Use
  Company Number: IT-MYLANLABS-2019M1045836

PATIENT
  Age: 1 Year
  Sex: Female

DRUGS (2)
  1. FLECAINIDE [Suspect]
     Active Substance: FLECAINIDE
     Indication: ARRHYTHMIA SUPRAVENTRICULAR
     Dosage: 75 MILLIGRAM, QD
     Route: 048
     Dates: start: 20180701, end: 20180822
  2. SOTALOL. [Suspect]
     Active Substance: SOTALOL
     Indication: ARRHYTHMIA SUPRAVENTRICULAR
     Dosage: 36 MILLIGRAM, QD
     Route: 048
     Dates: start: 20180701, end: 20180822

REACTIONS (4)
  - Drug ineffective [Unknown]
  - Arrhythmia [Unknown]
  - Dyspnoea [Unknown]
  - Off label use [Unknown]

NARRATIVE: CASE EVENT DATE: 20180922
